FAERS Safety Report 5144590-2 (Version None)
Quarter: 2006Q4

REPORT INFORMATION
  Report Type: 
  Country: None (occurrence: None)
  Receive Date: 20061031
  Receipt Date: 20061016
  Transmission Date: 20070319
  Serious: Yes (Life-Threatening, Hospitalization, Other)
  Sender: FDA-Public Use
  Company Number: S06-AUS-01971-02

PATIENT

DRUGS (1)
  1. CERVIDIL [Suspect]
     Indication: LABOUR INDUCTION
     Dosage: 10 MG ONCE TRANSPLACENTAL
     Route: 064
     Dates: start: 20060427, end: 20060427

REACTIONS (10)
  - APGAR SCORE LOW [None]
  - BLOOD BICARBONATE INCREASED [None]
  - BLOOD PH DECREASED [None]
  - DRUG EXPOSURE DURING PREGNANCY [None]
  - FLOPPY INFANT [None]
  - FOETAL HEART RATE DECELERATION [None]
  - MECONIUM STAIN [None]
  - PALLOR [None]
  - TACHYCARDIA FOETAL [None]
  - UMBILICAL CORD AROUND NECK [None]
